FAERS Safety Report 4999461-9 (Version None)
Quarter: 2006Q2

REPORT INFORMATION
  Report Type: 
  Country: None (occurrence: None)
  Receive Date: 20060511
  Receipt Date: 20060504
  Transmission Date: 20061013
  Serious: Yes (Other)
  Sender: FDA-Public Use
  Company Number: 2006PK00981

PATIENT
  Age: 62 Year
  Sex: Male

DRUGS (10)
  1. SEROQUEL [Interacting]
     Route: 048
  2. MADOPAR LIQ [Interacting]
     Indication: PARKINSON'S DISEASE
     Route: 048
  3. MADOPAR DR [Interacting]
     Indication: PARKINSON'S DISEASE
     Route: 048
  4. REQUIP [Interacting]
     Indication: PARKINSON'S DISEASE
     Route: 048
  5. COMTAN [Suspect]
     Indication: PARKINSON'S DISEASE
     Route: 048
  6. DETRUSITOL SR [Suspect]
     Indication: URINARY INCONTINENCE
     Route: 048
     Dates: start: 20051112
  7. LORAZEPAM [Suspect]
     Indication: ANXIETY DISORDER
     Route: 048
  8. CHLORALDURAT [Suspect]
     Indication: ANXIETY DISORDER
     Route: 048
     Dates: start: 20060308
  9. PROSCAR [Concomitant]
     Indication: URINARY INCONTINENCE
     Route: 048
  10. HEPATODORON [Concomitant]
     Route: 058

REACTIONS (3)
  - ANXIETY [None]
  - DRUG INTERACTION [None]
  - HALLUCINATION, VISUAL [None]
